FAERS Safety Report 7939804-7 (Version None)
Quarter: 2011Q4

REPORT INFORMATION
  Report Type: 
  Country: None (occurrence: None)
  Receive Date: 20111125
  Receipt Date: 20111122
  Transmission Date: 20120403
  Serious: Yes (Death, Other)
  Sender: FDA-Public Use
  Company Number: PHHY2011US102365

PATIENT
  Age: 70 Year
  Sex: Male

DRUGS (1)
  1. IMATINIB MESYLATE [Suspect]
     Indication: GASTROINTESTINAL STROMAL TUMOUR

REACTIONS (6)
  - PNEUMONITIS [None]
  - NEOPLASM PROGRESSION [None]
  - DYSPNOEA EXERTIONAL [None]
  - NEOPLASM MALIGNANT [None]
  - PLEURAL EFFUSION [None]
  - BRONCHIECTASIS [None]
